FAERS Safety Report 10307799 (Version 2)
Quarter: 2014Q3

REPORT INFORMATION
  Report Type: Spontaneous
  Country: JP (occurrence: JP)
  Receive Date: 20140716
  Receipt Date: 20140911
  Transmission Date: 20150326
  Serious: Yes (Disabling, Other)
  Sender: FDA-Public Use
  Company Number: JP-009507513-1407JPN006526

PATIENT
  Age: 44 Year
  Sex: Male
  Weight: 65 kg

DRUGS (21)
  1. GLYCYRON [Concomitant]
     Active Substance: AMMONIUM GLYCYRRHIZATE\GLYCINE\METHIONINE
     Indication: CHRONIC HEPATITIS C
     Dosage: 2 DF, TID
     Route: 048
     Dates: start: 20130909
  2. REBETOL [Suspect]
     Active Substance: RIBAVIRIN
     Indication: CHRONIC HEPATITIS C
     Dosage: DAILY DOSAGE UNKNOWN
     Route: 048
     Dates: end: 2008
  3. PROGRAF [Concomitant]
     Active Substance: TACROLIMUS\TACROLIMUS ANHYDROUS
     Indication: CHRONIC HEPATITIS C
     Dosage: 0.5 MG, BID
     Route: 048
     Dates: start: 20080911
  4. REBETOL [Suspect]
     Active Substance: RIBAVIRIN
     Dosage: 400MG DAILY, DIVIDED DOSE FREQUENCY UNKNOWN
     Route: 048
     Dates: start: 20140620, end: 20140704
  5. PEGINTRON [Suspect]
     Active Substance: PEGINTERFERON ALFA-2B
     Indication: CHRONIC HEPATITIS C
     Dosage: DAILY DOSAGE UNKNOWN
     Route: 058
  6. URSO [Concomitant]
     Active Substance: URSODIOL
     Indication: CHRONIC HEPATITIS C
     Dosage: 200 MG, TID
     Route: 048
     Dates: start: 20081002
  7. PEGINTRON [Suspect]
     Active Substance: PEGINTERFERON ALFA-2B
     Indication: CHRONIC HEPATITIS C
     Dosage: 100 MCG 1 WEEK
     Route: 058
     Dates: start: 20140307, end: 20140418
  8. PEGINTRON [Suspect]
     Active Substance: PEGINTERFERON ALFA-2B
     Dosage: 60 MCG 1 WEEK
     Route: 058
     Dates: start: 20140509, end: 20140522
  9. PEGINTRON [Suspect]
     Active Substance: PEGINTERFERON ALFA-2B
     Dosage: 80 MCG, 1 WEEK
     Route: 058
     Dates: start: 20140523, end: 20140626
  10. PEGINTRON [Suspect]
     Active Substance: PEGINTERFERON ALFA-2B
     Dosage: 60 MCG, 1WEEK
     Route: 058
     Dates: start: 20140627, end: 20140704
  11. REBETOL [Suspect]
     Active Substance: RIBAVIRIN
     Dosage: 400MG DAILY,  DIVIDED DOSE FREQUENCY UNKNOWN
     Route: 048
     Dates: start: 20140328, end: 20140418
  12. SIMEPREVIR [Suspect]
     Active Substance: SIMEPREVIR
     Indication: CHRONIC HEPATITIS C
     Dosage: 100 MG, DAILY
     Route: 048
     Dates: start: 20140307, end: 20140502
  13. NU-LOTAN [Concomitant]
     Active Substance: LOSARTAN POTASSIUM
     Indication: HYPERTENSION
     Dosage: 25 MG, QD
     Route: 048
     Dates: start: 20130222
  14. LOCHOL (FLUVASTATIN SODIUM) [Concomitant]
     Active Substance: FLUVASTATIN SODIUM
     Indication: DYSLIPIDAEMIA
     Dosage: 30 MG, QD
     Route: 048
     Dates: start: 20090129
  15. PARIET [Concomitant]
     Active Substance: RABEPRAZOLE SODIUM
     Indication: GASTROOESOPHAGEAL REFLUX DISEASE
     Dosage: 10 MG, QD
     Route: 048
     Dates: start: 20120113
  16. REBETOL [Suspect]
     Active Substance: RIBAVIRIN
     Indication: CHRONIC HEPATITIS C
     Dosage: 200MG-0MG-400MG/ DAY
     Route: 048
     Dates: start: 20140307, end: 20140327
  17. REBETOL [Suspect]
     Active Substance: RIBAVIRIN
     Dosage: 200MG DAILY, DIVIDED DOSE FREQUENCY UNKNOWN
     Route: 048
     Dates: start: 20140516, end: 20140619
  18. ALOSITOL [Concomitant]
     Active Substance: ALLOPURINOL
     Indication: HYPERURICAEMIA
     Dosage: 100 MG, QD
     Route: 048
     Dates: start: 20100910
  19. REBETOL [Suspect]
     Active Substance: RIBAVIRIN
     Dosage: DAILY DOSAGE UNKNOWN
     Dates: start: 2008
  20. SIMEPREVIR [Suspect]
     Active Substance: SIMEPREVIR
     Dosage: 100MG DAILY
     Route: 048
     Dates: start: 20140509, end: 20140613
  21. CELLCEPT [Concomitant]
     Active Substance: MYCOPHENOLATE MOFETIL\MYCOPHENOLATE MOFETIL HYDROCHLORIDE
     Indication: CHRONIC HEPATITIS C
     Dosage: 500 MG, TID
     Route: 048
     Dates: start: 20081121

REACTIONS (5)
  - Retinal artery occlusion [Not Recovered/Not Resolved]
  - Anaemia [Recovering/Resolving]
  - Retinal vein occlusion [Not Recovered/Not Resolved]
  - Drug ineffective [Unknown]
  - Anaemia [Unknown]

NARRATIVE: CASE EVENT DATE: 2008
